FAERS Safety Report 11156151 (Version 2)
Quarter: 2016Q2

REPORT INFORMATION
  Report Type: Report from Study
  Country: US (occurrence: US)
  Receive Date: 20150602
  Receipt Date: 20160526
  Transmission Date: 20160815
  Serious: Yes (Death)
  Sender: FDA-Public Use
  Company Number: US-SA-2015SA073665

PATIENT
  Sex: Female
  Weight: 50.5 kg

DRUGS (9)
  1. FLEXPEN [Concomitant]
     Active Substance: UNSPECIFIED INGREDIENT
  2. PROTONIX [Concomitant]
     Active Substance: PANTOPRAZOLE SODIUM
  3. SENSIPAR [Concomitant]
     Active Substance: CINACALCET HYDROCHLORIDE
  4. FLORASTOR [Concomitant]
     Active Substance: SACCHAROMYCES CEREVISIAE
  5. ELIQUIS [Concomitant]
     Active Substance: APIXABAN
  6. COREG [Concomitant]
     Active Substance: CARVEDILOL
  7. NOVOLOG [Concomitant]
     Active Substance: INSULIN ASPART
     Dosage: DOSE:100 INTERNATIONAL UNIT(S)/MILLILITRE
  8. LEVOTHYROXINE. [Concomitant]
     Active Substance: LEVOTHYROXINE
  9. RENVELA [Suspect]
     Active Substance: SEVELAMER CARBONATE
     Indication: HYPERPHOSPHATAEMIA
     Dosage: W/MEALS
     Route: 048

REACTIONS (1)
  - Cardiovascular disorder [Fatal]
